FAERS Safety Report 8117990-6 (Version None)
Quarter: 2012Q1

REPORT INFORMATION
  Report Type: 
  Country: None (occurrence: None)
  Receive Date: 20120202
  Receipt Date: 20120127
  Transmission Date: 20120608
  Serious: Yes (Hospitalization)
  Sender: FDA-Public Use
  Company Number: 2012SP005039

PATIENT
  Age: 36 Year
  Sex: Male

DRUGS (1)
  1. PEGTRON (PEGYLATED INTERFERON ALFA-2B W/RIBAVIRIN) [Suspect]
     Indication: HEPATITIS C
     Dates: start: 20110927

REACTIONS (7)
  - INFLUENZA LIKE ILLNESS [None]
  - HEADACHE [None]
  - PSORIASIS [None]
  - COLD SWEAT [None]
  - LETHARGY [None]
  - MOOD ALTERED [None]
  - DYSPNOEA EXERTIONAL [None]
